FAERS Safety Report 11742002 (Version 1)
Quarter: 2015Q4

REPORT INFORMATION
  Report Type: Spontaneous
  Country: US (occurrence: US)
  Receive Date: 20151116
  Receipt Date: 20151116
  Transmission Date: 20160304
  Serious: Yes (Other)
  Sender: FDA-Public Use
  Company Number: US-BEH-2015055676

PATIENT
  Sex: Male
  Weight: 72 kg

DRUGS (26)
  1. PROBIOTIC [Concomitant]
     Active Substance: PROBIOTICS NOS
  2. AZITHROMYCIN [Concomitant]
     Active Substance: AZITHROMYCIN ANHYDROUS
  3. HIZENTRA [Suspect]
     Active Substance: HUMAN IMMUNOGLOBULIN G
     Indication: IMMUNODEFICIENCY COMMON VARIABLE
     Dosage: 10 GM 50 ML VIAL
     Route: 058
  4. TORSEMIDE. [Concomitant]
     Active Substance: TORSEMIDE
  5. OXYGEN. [Concomitant]
     Active Substance: OXYGEN
  6. ONDANSETRON [Concomitant]
     Active Substance: ONDANSETRON
  7. NEXIUM [Concomitant]
     Active Substance: ESOMEPRAZOLE MAGNESIUM
  8. AMINO ACIDS [Concomitant]
     Active Substance: AMINO ACIDS
  9. DIPHENHYDRAMINE. [Concomitant]
     Active Substance: DIPHENHYDRAMINE
  10. FLUTICASONE [Concomitant]
     Active Substance: FLUTICASONE\FLUTICASONE PROPIONATE
  11. FLUCONAZOLE. [Concomitant]
     Active Substance: FLUCONAZOLE
  12. HIZENTRA [Suspect]
     Active Substance: HUMAN IMMUNOGLOBULIN G
     Dosage: 2 GM 10 ML VIAL
     Route: 058
  13. POLYETHYLENE GLYCOL [Concomitant]
     Active Substance: POLYETHYLENE GLYCOLS
  14. TRAMADOL. [Concomitant]
     Active Substance: TRAMADOL
  15. CALCIUM [Concomitant]
     Active Substance: CALCIUM
  16. LOSARTAN POTASSIUM. [Concomitant]
     Active Substance: LOSARTAN POTASSIUM
  17. SEREVENT DISKUS [Concomitant]
     Active Substance: SALMETEROL XINAFOATE
  18. HIZENTRA [Suspect]
     Active Substance: HUMAN IMMUNOGLOBULIN G
     Route: 058
  19. EPIPEN [Concomitant]
     Active Substance: EPINEPHRINE
  20. PROAIR HFA [Concomitant]
     Active Substance: ALBUTEROL SULFATE
  21. LIDOCAINE/PRILOCAINE [Concomitant]
  22. BYSTOLIC [Concomitant]
     Active Substance: NEBIVOLOL HYDROCHLORIDE
  23. CALCIUM + VITAMIN D+K [Concomitant]
  24. VITAMIN D [Concomitant]
     Active Substance: CHOLECALCIFEROL
  25. VITAMIN E [Concomitant]
     Active Substance: .ALPHA.-TOCOPHEROL
  26. PREDNISONE. [Concomitant]
     Active Substance: PREDNISONE

REACTIONS (1)
  - Pseudomonas infection [Unknown]
